FAERS Safety Report 5233513-3 (Version None)
Quarter: 2007Q1

REPORT INFORMATION
  Report Type: 
  Country: None (occurrence: None)
  Receive Date: 20070208
  Receipt Date: 20070130
  Transmission Date: 20070707
  Serious: Yes (Other)
  Sender: FDA-Public Use
  Company Number: US-BAYER-200614891BWH

PATIENT
  Age: 59 Year
  Sex: Male
  Weight: 107 kg

DRUGS (9)
  1. NEXAVAR [Suspect]
     Indication: METASTATIC RENAL CELL CARCINOMA
     Dosage: TOTAL DAILY DOSE: 200 MG  UNIT DOSE: 200 MG
     Route: 048
     Dates: start: 20060524, end: 20060701
  2. NEXAVAR [Suspect]
     Dosage: TOTAL DAILY DOSE: 200 MG  UNIT DOSE: 200 MG
     Route: 048
     Dates: start: 20060701, end: 20061004
  3. NEXAVAR [Suspect]
     Dosage: TOTAL DAILY DOSE: 400 MG  UNIT DOSE: 200 MG
     Route: 048
     Dates: start: 20060315, end: 20060719
  4. COUMADIN [Concomitant]
  5. DILANTIN [Concomitant]
  6. ACIPHEX [Concomitant]
  7. HYZAAR [Concomitant]
     Indication: HYPERTENSION
  8. DEPAKOTE [Concomitant]
  9. FLEXERIL [Concomitant]

REACTIONS (17)
  - ARTHRALGIA [None]
  - BACK PAIN [None]
  - BLOOD GLUCOSE INCREASED [None]
  - BLOOD PRESSURE DIASTOLIC INCREASED [None]
  - BONE PAIN [None]
  - DIABETES MELLITUS [None]
  - DIARRHOEA [None]
  - FATIGUE [None]
  - HYPERTENSION [None]
  - HYPERTHYROIDISM [None]
  - HYPOGLYCAEMIA [None]
  - LYMPHADENOPATHY [None]
  - MUSCLE SPASMS [None]
  - NAUSEA [None]
  - OEDEMA PERIPHERAL [None]
  - RENAL CELL CARCINOMA STAGE UNSPECIFIED [None]
  - RESTLESS LEGS SYNDROME [None]
